FAERS Safety Report 5146597-8 (Version None)
Quarter: 2006Q4

REPORT INFORMATION
  Report Type: 
  Country: None (occurrence: None)
  Receive Date: 20061109
  Receipt Date: 20061027
  Transmission Date: 20070319
  Serious: Yes (Other)
  Sender: FDA-Public Use
  Company Number: PHEH2006US13641

PATIENT
  Sex: Male

DRUGS (1)
  1. MIOCHOL-E [Suspect]
     Indication: CATARACT OPERATION
     Dosage: UNK, ONCE/SINGLE
     Dates: start: 20061027, end: 20061027

REACTIONS (2)
  - CORNEAL OPACITY [None]
  - MEDICATION ERROR [None]
